FAERS Safety Report 10442683 (Version 3)
Quarter: 2014Q4

REPORT INFORMATION
  Report Type: Spontaneous
  Country: JP (occurrence: JP)
  Receive Date: 20140909
  Receipt Date: 20141217
  Transmission Date: 20150528
  Serious: Yes (Hospitalization)
  Sender: FDA-Public Use
  Company Number: JP-ROCHE-1459316

PATIENT
  Age: 32 Year
  Sex: Female
  Weight: 50 kg

DRUGS (10)
  1. LYRICA [Concomitant]
     Active Substance: PREGABALIN
     Indication: BREAST CANCER
     Route: 048
     Dates: start: 20120701
  2. NOVAMIN (JAPAN) [Concomitant]
     Indication: BREAST CANCER
     Route: 048
     Dates: start: 20120701
  3. OXINORM (JAPAN) [Concomitant]
     Indication: BREAST CANCER
     Dosage: UNCERTAIN DOSAGE AND SINGLE USE
     Route: 048
     Dates: start: 201205
  4. OXYCONTIN [Concomitant]
     Active Substance: OXYCODONE HYDROCHLORIDE
     Indication: BREAST CANCER
     Route: 048
     Dates: start: 20120701
  5. PURSENNID [Concomitant]
     Active Substance: SENNOSIDES A AND B
     Route: 048
     Dates: start: 20120701
  6. GLYCYRON [Concomitant]
     Active Substance: AMMONIUM GLYCYRRHIZATE\GLYCINE\METHIONINE
     Indication: BREAST CANCER
     Route: 048
     Dates: start: 20120704
  7. PERJETA [Suspect]
     Active Substance: PERTUZUMAB
     Indication: BREAST CANCER
     Dosage: STRENGTH: 420MG/14ML
     Route: 041
     Dates: start: 20140708, end: 20140708
  8. URSODEOXYCHOLIC ACID [Concomitant]
     Active Substance: URSODIOL
     Indication: BREAST CANCER
     Dosage: DOSAGE IS UNCERTAIN.
     Route: 048
     Dates: start: 20120704
  9. PERJETA [Suspect]
     Active Substance: PERTUZUMAB
     Route: 041
     Dates: start: 20140730
  10. CALONAL [Concomitant]
     Active Substance: ACETAMINOPHEN
     Indication: BREAST CANCER
     Route: 048
     Dates: start: 201207

REACTIONS (2)
  - Tumour lysis syndrome [Recovered/Resolved]
  - Infusion related reaction [Recovering/Resolving]

NARRATIVE: CASE EVENT DATE: 20140714
